FAERS Safety Report 8090840-2 (Version None)
Quarter: 2012Q1

REPORT INFORMATION
  Report Type: 
  Country: None (occurrence: None)
  Receive Date: 20120131
  Receipt Date: 20120116
  Transmission Date: 20120608
  Serious: Yes (Hospitalization, Other)
  Sender: FDA-Public Use
  Company Number: CA-JNJFOC-20120112481

PATIENT
  Sex: Female
  Weight: 60 kg

DRUGS (7)
  1. METHOTREXATE [Concomitant]
     Route: 065
  2. REMICADE [Suspect]
     Route: 042
     Dates: start: 20051001
  3. VENTOLIN [Concomitant]
     Route: 065
  4. REMICADE [Suspect]
     Indication: RHEUMATOID ARTHRITIS
     Dosage: 103 INFUSION
     Route: 042
     Dates: start: 20120116
  5. FLOVENT [Concomitant]
     Route: 065
  6. HYDROXYCHLOROQUINE SULFATE [Concomitant]
     Route: 065
  7. AMITRIPTYLINE HCL [Concomitant]
     Route: 065

REACTIONS (5)
  - HUMERUS FRACTURE [None]
  - FALL [None]
  - CONVULSION [None]
  - LOSS OF CONSCIOUSNESS [None]
  - HEADACHE [None]
